FAERS Safety Report 6159733-1 (Version None)
Quarter: 2009Q2

REPORT INFORMATION
  Report Type: 
  Country: None (occurrence: None)
  Receive Date: 20090420
  Receipt Date: 20090415
  Transmission Date: 20091009
  Serious: Yes (Life-Threatening, Disabling, Other)
  Sender: FDA-Public Use
  Company Number: GB-ASTRAZENECA-2008GB01498

PATIENT
  Age: 64 Year
  Sex: Female
  Weight: 55 kg

DRUGS (10)
  1. SEROQUEL [Suspect]
     Indication: DEPRESSION
     Dosage: INITIALLY GIVEN IN SMALL DOSE
     Route: 048
     Dates: start: 20050101
  2. SEROQUEL [Suspect]
     Route: 048
     Dates: start: 20080101
  3. SEROQUEL [Suspect]
     Route: 048
  4. SEROQUEL [Suspect]
     Route: 048
     Dates: end: 20080331
  5. GABAPENTIN [Concomitant]
  6. ASPIRIN [Concomitant]
  7. PERINDOPRIL [Concomitant]
  8. ROSUVASTATIN CALCIUM [Concomitant]
  9. MIRTAZAPINE [Concomitant]
  10. GLUCOPHAGE [Concomitant]

REACTIONS (26)
  - ANOREXIA [None]
  - APHASIA [None]
  - ARTHRALGIA [None]
  - BONE PAIN [None]
  - DYSPNOEA [None]
  - EAR PAIN [None]
  - EPILEPSY [None]
  - HAND DEFORMITY [None]
  - HEADACHE [None]
  - HYPOGEUSIA [None]
  - INTERVERTEBRAL DISC DEGENERATION [None]
  - MUSCLE SPASMS [None]
  - MYALGIA [None]
  - NERVE INJURY [None]
  - NEUROLEPTIC MALIGNANT SYNDROME [None]
  - NUCHAL RIGIDITY [None]
  - ORAL FUNGAL INFECTION [None]
  - PAIN [None]
  - PARAESTHESIA [None]
  - RASH GENERALISED [None]
  - SPINAL FUSION SURGERY [None]
  - SPINAL OSTEOARTHRITIS [None]
  - SPONDYLITIS [None]
  - TONGUE BITING [None]
  - TOOTH INJURY [None]
  - WITHDRAWAL SYNDROME [None]
